FAERS Safety Report 7171532-0 (Version None)
Quarter: 2010Q4

REPORT INFORMATION
  Report Type: 
  Country: None (occurrence: None)
  Receive Date: 20101217
  Receipt Date: 20101210
  Transmission Date: 20110411
  Serious: Yes (Other)
  Sender: FDA-Public Use
  Company Number: BR-PFIZER INC-2010169991

PATIENT
  Sex: Female
  Weight: 98.866 kg

DRUGS (9)
  1. GEODON [Suspect]
     Dosage: 80 MG, 1X/DAY
     Route: 048
     Dates: start: 20101125
  2. LAMOTRIGINE [Concomitant]
     Dosage: UNK
     Dates: start: 20050101
  3. RIVOTRIL [Concomitant]
     Dosage: UNK
     Dates: start: 19900101
  4. ACETAMINOPHEN [Concomitant]
     Dosage: UNK
     Dates: start: 20101205
  5. CHLORPHENIRAMINE MALEATE [Concomitant]
     Dosage: UNK
     Dates: start: 20101205
  6. PHENYLEPHRINE HYDROCHLORIDE [Concomitant]
  7. LORATADINE [Concomitant]
     Dosage: UNK
     Dates: start: 20101205
  8. DROPROPIZINE [Concomitant]
     Dosage: UNK
     Dates: start: 20101205
  9. HYDROXYZINE HYDROCHLORIDE [Concomitant]
     Dosage: UNK
     Dates: start: 20101205

REACTIONS (7)
  - EYE DISORDER [None]
  - HYPOAESTHESIA ORAL [None]
  - INFLUENZA [None]
  - TONGUE DISORDER [None]
  - URINARY INCONTINENCE [None]
  - VIITH NERVE PARALYSIS [None]
  - VISION BLURRED [None]
